FAERS Safety Report 10755678 (Version 1)
Quarter: 2015Q1

REPORT INFORMATION
  Report Type: Report from Study
  Country: US (occurrence: US)
  Receive Date: 20150202
  Receipt Date: 20150202
  Transmission Date: 20150721
  Serious: Yes (Life-Threatening, Hospitalization)
  Sender: FDA-Public Use
  Company Number: US-GILEAD-2014-0128556

PATIENT
  Age: 66 Year
  Weight: 53.8 kg

DRUGS (3)
  1. ZOLOFT [Concomitant]
     Active Substance: SERTRALINE HYDROCHLORIDE
     Dosage: 100 MG, QD
  2. IDELALISIB [Suspect]
     Active Substance: IDELALISIB
     Indication: NON-HODGKIN^S LYMPHOMA
     Dosage: 150 MG, BID
     Route: 048
     Dates: start: 20140822, end: 201411
  3. NYSTATIN. [Concomitant]
     Active Substance: NYSTATIN

REACTIONS (12)
  - Pyrexia [Recovered/Resolved]
  - Decreased appetite [Unknown]
  - Dehydration [Recovered/Resolved]
  - Abdominal pain [Unknown]
  - Chills [Unknown]
  - Anaemia [Unknown]
  - Electrolyte imbalance [Recovered/Resolved]
  - Weight decreased [Unknown]
  - Haematochezia [Unknown]
  - Nausea [Recovered/Resolved]
  - Diarrhoea [Not Recovered/Not Resolved]
  - Neutropenia [Recovering/Resolving]

NARRATIVE: CASE EVENT DATE: 20141124
